FAERS Safety Report 8380834-1 (Version None)
Quarter: 2012Q2

REPORT INFORMATION
  Report Type: 
  Country: None (occurrence: None)
  Receive Date: 20120523
  Receipt Date: 20120514
  Transmission Date: 20120825
  Serious: Yes (Other)
  Sender: FDA-Public Use
  Company Number: US-JNJFOC-20120513985

PATIENT
  Age: 37 Year
  Sex: Male
  Weight: 59.42 kg

DRUGS (11)
  1. MYLANTA GAS MAXIMUM STRENGTH MINT TABLETS [Suspect]
     Indication: FLATULENCE
     Dosage: 13 DAYS
     Route: 048
  2. MULTI-VITAMINS [Concomitant]
     Indication: ROUTINE HEALTH MAINTENANCE
     Route: 065
  3. MYLANTA GAS MAXIMUM STRENGTH MINT TABLETS [Suspect]
     Route: 048
     Dates: start: 20120512, end: 20120514
  4. MYLANTA GAS MAXIMUM STRENGTH MINT TABLETS [Suspect]
     Indication: GASTROOESOPHAGEAL REFLUX DISEASE
     Dosage: 13 DAYS
     Route: 048
  5. BENTYL [Concomitant]
     Indication: GASTROINTESTINAL DISORDER
     Dosage: FOR 3 DAYS
     Route: 065
  6. VALACYCLOVIR HYDROCHLORIDE [Concomitant]
     Indication: GENITAL HERPES
     Dosage: FOR 3 WEEKS
     Route: 065
  7. PREDNISONE [Concomitant]
     Indication: LYMPHADENOPATHY
     Route: 065
  8. MYLANTA GAS MAXIMUM STRENGTH MINT TABLETS [Suspect]
     Route: 048
     Dates: start: 20120512, end: 20120514
  9. CARAFATE [Concomitant]
     Indication: GASTROINTESTINAL DISORDER
     Dosage: FOR 2 WEEKS
     Route: 065
  10. OMEPRAZOLE [Concomitant]
     Indication: GASTROOESOPHAGEAL REFLUX DISEASE
     Route: 065
  11. DOCUSATE SODIUM [Concomitant]
     Indication: CONSTIPATION
     Route: 065

REACTIONS (3)
  - DIZZINESS [None]
  - VISION BLURRED [None]
  - DRUG INEFFECTIVE FOR UNAPPROVED INDICATION [None]
